FAERS Safety Report 10268226 (Version 1)
Quarter: 2014Q2

REPORT INFORMATION
  Report Type: Spontaneous
  Country: DE (occurrence: DE)
  Receive Date: 20140630
  Receipt Date: 20140630
  Transmission Date: 20141212
  Serious: Yes (Congenital Anomaly, Other)
  Sender: FDA-Public Use
  Company Number: GXKR2014DE002387

PATIENT
  Sex: 0

DRUGS (6)
  1. VALSARTAN [Suspect]
     Indication: HYPERTENSION
     Dosage: 160 [MG/D ]
     Route: 064
     Dates: start: 20130513, end: 20131103
  2. BISOPROLOL [Concomitant]
     Indication: HYPERTENSION
     Dosage: 5 [MG/D ]
     Route: 064
     Dates: start: 20130513, end: 20140127
  3. LAMUNA [Concomitant]
     Indication: ORAL CONTRACEPTION
     Dosage: 0.15 [MG/D ] / 0.02 [MG/D ]
     Route: 064
     Dates: start: 20130513, end: 20131019
  4. DOPEGYT [Concomitant]
     Indication: HYPERTENSION
     Dosage: 250 [MG/D ]
     Route: 064
     Dates: start: 20131112, end: 20140127
  5. INSULIN [Concomitant]
     Indication: TYPE 2 DIABETES MELLITUS
     Route: 064
     Dates: start: 20130513, end: 20140127
  6. FOLIO [Concomitant]
     Indication: PROPHYLAXIS OF NEURAL TUBE DEFECT
     Dosage: 0.4 [MG/D ]
     Route: 064

REACTIONS (2)
  - Congenital renal disorder [Unknown]
  - Atrial septal defect [Unknown]
